FAERS Safety Report 4795594-0 (Version None)
Quarter: 2005Q3

REPORT INFORMATION
  Report Type: 
  Country: None (occurrence: None)
  Receive Date: 20050929
  Receipt Date: 20050712
  Transmission Date: 20060218
  Serious: No
  Sender: FDA-Public Use
  Company Number: 05P-163-0305892-00

PATIENT
  Age: 53 Year
  Sex: Female

DRUGS (6)
  1. HUMIRA [Suspect]
     Indication: RHEUMATOID ARTHRITIS
     Dosage: 40 MG, 1IN 2 WK, SUBCUTANEOUS
     Route: 058
     Dates: start: 20050704, end: 20050706
  2. LEFLUNOMIDE [Concomitant]
  3. PANTOPRAZOLE [Concomitant]
  4. METHOTREXATE SODIUM [Concomitant]
  5. FOLIC ACID [Concomitant]
  6. ARTHROTEC [Concomitant]

REACTIONS (1)
  - RASH GENERALISED [None]
